FAERS Safety Report 4868193-X (Version None)
Quarter: 2005Q4

REPORT INFORMATION
  Report Type: 
  Country: None (occurrence: None)
  Receive Date: 20051229
  Receipt Date: 20051219
  Transmission Date: 20060501
  Serious: Yes (Hospitalization)
  Sender: FDA-Public Use
  Company Number: NO-BRISTOL-MYERS SQUIBB COMPANY-13221577

PATIENT
  Age: 51 Year
  Sex: Female

DRUGS (3)
  1. IRBESARTAN [Suspect]
     Indication: HYPERTENSION
     Dosage: DISCONTINUED, BUT 3 DAYS AFTER DISCONTINUATION, PATIENT MISTAKENLY TOOK TABLET LEFT IN BOX
     Route: 048
  2. PREDNISOLONE [Concomitant]
     Indication: LUPUS NEPHRITIS
  3. AZATHIOPRINE [Concomitant]
     Indication: LUPUS NEPHRITIS

REACTIONS (2)
  - ANGIONEUROTIC OEDEMA [None]
  - SHOCK [None]
